FAERS Safety Report 8063496-2 (Version None)
Quarter: 2012Q1

REPORT INFORMATION
  Report Type: 
  Country: None (occurrence: None)
  Receive Date: 20120118
  Receipt Date: 20120112
  Transmission Date: 20120608
  Serious: Yes (Hospitalization)
  Sender: FDA-Public Use
  Company Number: ACO_28937_2012

PATIENT
  Age: 45 Year
  Sex: Female
  Weight: 104.3 kg

DRUGS (6)
  1. COPAXONE [Concomitant]
  2. AMPYRA [Suspect]
     Indication: GAIT DISTURBANCE
     Dosage: 10 MG, BID, ORAL
     Route: 048
     Dates: start: 20100401, end: 20111227
  3. DETROL [Concomitant]
  4. ABILIFY [Concomitant]
  5. LEXAPRO [Concomitant]
  6. METHOCARBAMOL [Concomitant]

REACTIONS (8)
  - SKIN DISCOLOURATION [None]
  - RESPIRATORY ARREST [None]
  - SECONDARY PROGRESSIVE MULTIPLE SCLEROSIS [None]
  - LOSS OF CONSCIOUSNESS [None]
  - SYNCOPE [None]
  - CHOKING [None]
  - EYE MOVEMENT DISORDER [None]
  - HEART RATE INCREASED [None]
